FAERS Safety Report 12142351 (Version 4)
Quarter: 2016Q4

REPORT INFORMATION
  Report Type: Spontaneous
  Country: US (occurrence: US)
  Receive Date: 20160303
  Receipt Date: 20161111
  Transmission Date: 20170207
  Serious: Yes (Other)
  Sender: FDA-Public Use
  Company Number: US-TEVA-635806USA

PATIENT
  Age: 48 Year
  Sex: Female

DRUGS (4)
  1. LAMICTAL [Concomitant]
     Active Substance: LAMOTRIGINE
  2. ZECUITY [Suspect]
     Active Substance: SUMATRIPTAN SUCCINATE
     Indication: MIGRAINE
     Route: 062
     Dates: start: 201602, end: 201602
  3. CEPHALOSPORIN [Concomitant]
     Active Substance: UNSPECIFIED INGREDIENT
  4. MORPHINE [Concomitant]
     Active Substance: MORPHINE

REACTIONS (13)
  - Application site erythema [Recovered/Resolved]
  - Application site haemorrhage [Recovered/Resolved]
  - Application site paraesthesia [Recovered/Resolved]
  - Application site pruritus [Recovered/Resolved]
  - Application site discomfort [Recovered/Resolved]
  - Drug effect incomplete [Unknown]
  - Application site pain [Recovered/Resolved]
  - Application site irritation [Recovered/Resolved]
  - Application site warmth [Recovered/Resolved]
  - Application site vesicles [Recovered/Resolved]
  - Application site discolouration [Recovered/Resolved]
  - Application site scab [Recovered/Resolved]
  - Application site burn [Recovered/Resolved]

NARRATIVE: CASE EVENT DATE: 201602
